FAERS Safety Report 12957013 (Version 2)
Quarter: 2016Q4

REPORT INFORMATION
  Report Type: Spontaneous
  Country: US (occurrence: US)
  Receive Date: 20161118
  Receipt Date: 20161219
  Transmission Date: 20170207
  Serious: Yes (Other)
  Sender: FDA-Public Use
  Company Number: US-SEPTODONT-201603678

PATIENT
  Age: 77 Year
  Sex: Male
  Weight: 86 kg

DRUGS (1)
  1. MEPIVACAINE [Suspect]
     Active Substance: MEPIVACAINE\MEPIVACAINE HYDROCHLORIDE
     Indication: LOCAL ANAESTHESIA
     Dosage: 2 CARTRIDGES ADMINISTERED VIA IANB, 1 CARTRIDGE ADMINISTERED VIA INFILTRATION
     Route: 004
     Dates: start: 20160727, end: 20160727

REACTIONS (8)
  - Morbid thoughts [Recovered/Resolved]
  - Panic reaction [Recovered/Resolved]
  - Flashback [Recovered/Resolved]
  - Syncope [Recovered/Resolved]
  - Delirium [Recovered/Resolved]
  - Nervousness [Recovered/Resolved]
  - Depressed mood [Unknown]
  - Dyspnoea [Unknown]

NARRATIVE: CASE EVENT DATE: 20160727
